FAERS Safety Report 5420623-0 (Version None)
Quarter: 2007Q3

REPORT INFORMATION
  Report Type: 
  Country: None (occurrence: None)
  Receive Date: 20070821
  Receipt Date: 20070810
  Transmission Date: 20080115
  Serious: Yes (Death)
  Sender: FDA-Public Use
  Company Number: DEWYE164213AUG07

PATIENT
  Sex: Female

DRUGS (1)
  1. CLIMOPAX [Suspect]
     Dosage: UNKNOWN

REACTIONS (1)
  - BREAST CANCER [None]
